FAERS Safety Report 5646405-2 (Version None)
Quarter: 2008Q1

REPORT INFORMATION
  Report Type: 
  Country: None (occurrence: None)
  Receive Date: 20080227
  Receipt Date: 20080211
  Transmission Date: 20080703
  Serious: Yes (Hospitalization)
  Sender: FDA-Public Use
  Company Number: DSA_31433_2008

PATIENT
  Sex: Male

DRUGS (3)
  1. LORAZEPAM [Suspect]
     Dosage: ORAL
     Route: 048
     Dates: start: 20080210, end: 20080210
  2. BISOPROLOL (BISOPROLOL) 5 MG [Suspect]
     Dosage: (25 MG 1X ORAL)
     Route: 048
     Dates: start: 20080210, end: 20080210
  3. ETHANOL (WINE - ETHANOL) [Suspect]
     Dosage: (1.5 1 1X ORAL)
     Route: 048
     Dates: start: 20080210, end: 20080210

REACTIONS (5)
  - CARDIOVASCULAR INSUFFICIENCY [None]
  - HYPOTENSION [None]
  - MULTIPLE DRUG OVERDOSE INTENTIONAL [None]
  - SOMNOLENCE [None]
  - SUICIDE ATTEMPT [None]
